FAERS Safety Report 9708248 (Version 1)
Quarter: 2013Q4

REPORT INFORMATION
  Report Type: Spontaneous
  Country: US (occurrence: US)
  Receive Date: 20131125
  Receipt Date: 20131125
  Transmission Date: 20140711
  Serious: No
  Sender: FDA-Public Use
  Company Number: US-TARO-2013P1003686

PATIENT
  Age: 67 Year
  Sex: Female
  Weight: 54.43 kg

DRUGS (16)
  1. CARBAMAZEPINE TABLETS USP 200 MG [Suspect]
     Route: 048
     Dates: start: 201101
  2. TYLENOL [Concomitant]
  3. TRANZENE [Concomitant]
  4. CLORAZEPATE [Concomitant]
  5. ATENOLOL [Concomitant]
  6. FLUOXETINE [Concomitant]
  7. THEOPHYLLINE [Concomitant]
  8. ALBUTEROL SOLUTION [Concomitant]
     Route: 055
  9. ADVAIR [Concomitant]
     Route: 055
  10. SPIRIVA [Concomitant]
     Route: 055
  11. TRAZODONE [Concomitant]
     Route: 048
  12. EVISTA [Concomitant]
     Route: 048
  13. SIMVASTATIN [Concomitant]
  14. LASIX [Concomitant]
  15. POTASSIUM [Concomitant]
  16. PROAIR HFA [Concomitant]
     Route: 055

REACTIONS (12)
  - Headache [Not Recovered/Not Resolved]
  - Mouth ulceration [Not Recovered/Not Resolved]
  - Fatigue [Not Recovered/Not Resolved]
  - Asthenia [Not Recovered/Not Resolved]
  - Nausea [Not Recovered/Not Resolved]
  - Aphagia [Not Recovered/Not Resolved]
  - Diarrhoea [Not Recovered/Not Resolved]
  - Dermatitis [Not Recovered/Not Resolved]
  - Osteoarthritis [Not Recovered/Not Resolved]
  - Off label use [Not Recovered/Not Resolved]
  - Mouth haemorrhage [Not Recovered/Not Resolved]
  - Product substitution issue [Unknown]
